FAERS Safety Report 25595773 (Version 1)
Quarter: 2025Q3

REPORT INFORMATION
  Report Type: Spontaneous
  Country: GB (occurrence: GB)
  Receive Date: 20250723
  Receipt Date: 20250723
  Transmission Date: 20251020
  Serious: Yes (Other)
  Sender: TEVA
  Company Number: GB-MHRA-WEBRADR-202507160836006090-DQJNL

PATIENT
  Sex: Female

DRUGS (2)
  1. FLUCONAZOLE [Suspect]
     Active Substance: FLUCONAZOLE
     Indication: Oesophageal candidiasis
     Route: 048
     Dates: start: 20250613, end: 20250617
  2. NITROFURANTOIN [Suspect]
     Active Substance: NITROFURANTOIN
     Indication: Urinary tract infection
     Route: 065
     Dates: start: 20250617

REACTIONS (2)
  - Dyspnoea [Recovered/Resolved]
  - Abdominal pain upper [Recovered/Resolved]

NARRATIVE: CASE EVENT DATE: 20250617
